FAERS Safety Report 24875279 (Version 1)
Quarter: 2025Q1

REPORT INFORMATION
  Report Type: Spontaneous
  Country: US (occurrence: None)
  Receive Date: 20250122
  Receipt Date: 20250122
  Transmission Date: 20250409
  Serious: Yes (Disabling)
  Sender: FDA-CTU
  Company Number: None

PATIENT
  Age: 53 Year
  Sex: Female
  Weight: 59.85 kg

DRUGS (2)
  1. MULTIHANCE [Suspect]
     Active Substance: GADOBENATE DIMEGLUMINE
     Indication: Magnetic resonance imaging
     Route: 040
     Dates: start: 201011, end: 20240420
  2. MULTIHANCE [Concomitant]
     Active Substance: GADOBENATE DIMEGLUMINE
     Dates: start: 201011, end: 20240424

REACTIONS (27)
  - Renal failure [None]
  - Alopecia [None]
  - Fibrosis [None]
  - Syncope [None]
  - Insomnia [None]
  - Muscle atrophy [None]
  - Muscular weakness [None]
  - Bone infarction [None]
  - Hypogammaglobulinaemia [None]
  - Neutropenia [None]
  - Bone pain [None]
  - Eyelid ptosis [None]
  - Tooth loss [None]
  - Gingival disorder [None]
  - Enlarged uvula [None]
  - Skin atrophy [None]
  - Dysphagia [None]
  - Dysphonia [None]
  - Connective tissue disorder [None]
  - Sexual dysfunction [None]
  - Peroneal nerve palsy [None]
  - Tinnitus [None]
  - Sjogren^s syndrome [None]
  - Ocular hyperaemia [None]
  - Corneal deposits [None]
  - Pericarditis [None]
  - Meibomian gland dysfunction [None]

NARRATIVE: CASE EVENT DATE: 20101110
